FAERS Safety Report 4768745-1 (Version None)
Quarter: 2005Q3

REPORT INFORMATION
  Report Type: 
  Country: None (occurrence: None)
  Receive Date: 20050914
  Receipt Date: 20050910
  Transmission Date: 20060218
  Serious: Yes (Hospitalization, Other)
  Sender: FDA-Public Use
  Company Number: AE2005/0489

PATIENT
  Age: 57 Year
  Sex: Male

DRUGS (2)
  1. AMOXICILLIN [Suspect]
     Indication: ORCHITIS
     Route: 065
  2. METHOTREXATE [Concomitant]
     Indication: PSORIASIS
     Route: 065

REACTIONS (14)
  - ACUTE GENERALISED EXANTHEMATOUS PUSTULOSIS [None]
  - BLEPHARITIS [None]
  - DERMATITIS EXFOLIATIVE [None]
  - EPIDIDYMAL INFECTION [None]
  - MALAISE [None]
  - MUCOSAL EROSION [None]
  - ORAL PUSTULE [None]
  - PYREXIA [None]
  - RASH PUSTULAR [None]
  - SKIN EXFOLIATION [None]
  - SKIN OEDEMA [None]
  - SUBCORNEAL PUSTULAR DERMATOSIS [None]
  - TESTICULAR PAIN [None]
  - TESTICULAR SWELLING [None]
